FAERS Safety Report 21423749 (Version 1)
Quarter: 2022Q4

REPORT INFORMATION
  Report Type: Spontaneous
  Country: ES (occurrence: ES)
  Receive Date: 20221007
  Receipt Date: 20221007
  Transmission Date: 20230113
  Serious: Yes (Hospitalization)
  Sender: FDA-Public Use
  Company Number: None

PATIENT
  Age: 47 Year
  Sex: Female

DRUGS (4)
  1. DOXORUBICIN [Suspect]
     Active Substance: DOXORUBICIN
     Indication: Invasive ductal breast carcinoma
     Dosage: CYCLE 4 C/21 DAYS  , DOXORUBICINA (202A) , DURATION : 69 DAYS
     Route: 065
     Dates: start: 20210618, end: 20210826
  2. CYCLOPHOSPHAMIDE [Suspect]
     Active Substance: CYCLOPHOSPHAMIDE
     Indication: Invasive ductal breast carcinoma
     Dosage: CYCLE 4 C/21 DAYS , CICLOFOSFAMIDA (120A) , DURATION : 69 DAYS
     Route: 065
     Dates: start: 20210618, end: 20210826
  3. OMEPRAZOLE TEVA-RIMAFAR [Concomitant]
     Indication: Breast cancer
     Dosage: 20.0 MG A-DECE,FORM STRENGTH :  20 MG HARD GASTRO-RESISTANT CAPSULES EFG, 56 CAPSULES
     Dates: start: 20210624
  4. PARACETAMOL CINFA [Concomitant]
     Indication: Breast cancer
     Dosage: 1.0 G DECOCE  ,FORM STRENGTH :  1 G , 40 SACHETS
     Dates: start: 20210830

REACTIONS (1)
  - Febrile neutropenia [Recovered/Resolved]

NARRATIVE: CASE EVENT DATE: 20210908
